FAERS Safety Report 14587234 (Version 1)
Quarter: 2018Q1

REPORT INFORMATION
  Report Type: Spontaneous
  Country: US (occurrence: US)
  Receive Date: 20180228
  Receipt Date: 20180228
  Transmission Date: 20180509
  Serious: Yes (Death)
  Sender: FDA-Public Use
  Company Number: None

PATIENT
  Age: 80 Year
  Sex: Female
  Weight: 81.9 kg

DRUGS (17)
  1. VITAMIN C [Concomitant]
     Active Substance: ASCORBIC ACID
  2. BRILINTA [Concomitant]
     Active Substance: TICAGRELOR
  3. JADENU [Suspect]
     Active Substance: DEFERASIROX
     Indication: HAEMOCHROMATOSIS
     Route: 048
     Dates: start: 20170707, end: 20180227
  4. PROCHLORPERAZINE. [Concomitant]
     Active Substance: PROCHLORPERAZINE
  5. CYANOCOBALAMIN. [Concomitant]
     Active Substance: CYANOCOBALAMIN
  6. CRESTOR [Concomitant]
     Active Substance: ROSUVASTATIN CALCIUM
  7. VITAMIN D [Concomitant]
     Active Substance: CHOLECALCIFEROL
  8. FOLIC ACID. [Concomitant]
     Active Substance: FOLIC ACID
  9. ZOLINZA [Concomitant]
     Active Substance: VORINOSTAT
  10. TOPROL XL [Concomitant]
     Active Substance: METOPROLOL SUCCINATE
  11. JADENU [Suspect]
     Active Substance: DEFERASIROX
     Indication: HAEMOCHROMATOSIS
     Route: 048
     Dates: start: 20170706, end: 20180227
  12. PROCRIT [Concomitant]
     Active Substance: ERYTHROPOIETIN
  13. ARANESP [Concomitant]
     Active Substance: DARBEPOETIN ALFA
  14. NEXIUM [Concomitant]
     Active Substance: ESOMEPRAZOLE MAGNESIUM
  15. TIZANIDINE. [Concomitant]
     Active Substance: TIZANIDINE
  16. TABLOID [Concomitant]
     Active Substance: THIOGUANINE
  17. ASPIRIN. [Concomitant]
     Active Substance: ASPIRIN

REACTIONS (1)
  - Disease progression [None]

NARRATIVE: CASE EVENT DATE: 20180227
